FAERS Safety Report 4322892-7 (Version None)
Quarter: 2004Q1

REPORT INFORMATION
  Report Type: 
  Country: None (occurrence: None)
  Receive Date: 20040324
  Receipt Date: 20040317
  Transmission Date: 20041129
  Serious: Yes (Hospitalization, Disabling)
  Sender: FDA-Public Use
  Company Number: WAES 0403USA01563

PATIENT
  Age: 54 Year
  Sex: Male

DRUGS (3)
  1. TEGRETOL [Concomitant]
  2. PROPECIA [Suspect]
     Indication: ALOPECIA
     Route: 048
  3. GEMFIBROZIL [Concomitant]

REACTIONS (4)
  - ASEPTIC NECROSIS BONE [None]
  - HYPOAESTHESIA [None]
  - LOWER LIMB FRACTURE [None]
  - TESTICULAR PAIN [None]
